FAERS Safety Report 6959602-0 (Version None)
Quarter: 2010Q3

REPORT INFORMATION
  Report Type: 
  Country: None (occurrence: None)
  Receive Date: 20100825
  Receipt Date: 20100818
  Transmission Date: 20110219
  Serious: Yes (Hospitalization)
  Sender: FDA-Public Use
  Company Number: WAES 1006USA03046

PATIENT
  Age: 65 Year
  Sex: Female

DRUGS (20)
  1. JANUVIA [Suspect]
     Indication: TYPE 2 DIABETES MELLITUS
     Dosage: 100 MG/DAILY PO; 50 MG/DAILY; 50 MG/DAILY; 1 TAB/DAILY
     Route: 048
     Dates: start: 20090509, end: 20090522
  2. JANUVIA [Suspect]
     Indication: TYPE 2 DIABETES MELLITUS
     Dosage: 100 MG/DAILY PO; 50 MG/DAILY; 50 MG/DAILY; 1 TAB/DAILY
     Route: 048
     Dates: start: 20090523, end: 20090911
  3. JANUVIA [Suspect]
     Indication: TYPE 2 DIABETES MELLITUS
     Dosage: 100 MG/DAILY PO; 50 MG/DAILY; 50 MG/DAILY; 1 TAB/DAILY
     Route: 048
     Dates: start: 20090912, end: 20100109
  4. JANUVIA [Suspect]
     Indication: TYPE 2 DIABETES MELLITUS
     Dosage: 100 MG/DAILY PO; 50 MG/DAILY; 50 MG/DAILY; 1 TAB/DAILY
     Route: 048
     Dates: start: 20090109, end: 20100508
  5. JANUVIA [Suspect]
     Indication: TYPE 2 DIABETES MELLITUS
     Dosage: 100 MG/DAILY PO; 50 MG/DAILY; 50 MG/DAILY; 1 TAB/DAILY
     Route: 048
     Dates: start: 20090511, end: 20100521
  6. ALMATOL [Concomitant]
  7. ASPIRIN [Concomitant]
  8. BLOPRESS [Concomitant]
  9. CIBENOL [Concomitant]
  10. LASIX [Concomitant]
  11. LIPITOR [Concomitant]
  12. MAGMITT [Concomitant]
  13. KETOPROFEN [Concomitant]
  14. MYONAL [Concomitant]
  15. NOVORAPID [Concomitant]
  16. OLMETEC [Concomitant]
  17. PARIET [Concomitant]
  18. FURSENNID [Concomitant]
  19. RHYTHMY [Concomitant]
  20. WARFARIN SODIUM [Concomitant]

REACTIONS (17)
  - ASTHENIA [None]
  - ATRIAL FIBRILLATION [None]
  - AUTONOMIC NERVOUS SYSTEM IMBALANCE [None]
  - BLOOD CREATINE INCREASED [None]
  - BLOOD PRESSURE FLUCTUATION [None]
  - BLOOD UREA INCREASED [None]
  - CONDITION AGGRAVATED [None]
  - DECREASED APPETITE [None]
  - DIABETIC NEUROPATHY [None]
  - DIZZINESS [None]
  - DYSURIA [None]
  - FEELING OF BODY TEMPERATURE CHANGE [None]
  - HYPOAESTHESIA [None]
  - HYPOGLYCAEMIA [None]
  - IRON DEFICIENCY ANAEMIA [None]
  - MALAISE [None]
  - NEUROGENIC BLADDER [None]
